FAERS Safety Report 9404821 (Version 1)
Quarter: 2013Q3

REPORT INFORMATION
  Report Type: Spontaneous
  Country: US (occurrence: US)
  Receive Date: 20130717
  Receipt Date: 20130717
  Transmission Date: 20140515
  Serious: No
  Sender: FDA-Public Use
  Company Number: US-PFIZER INC-2013207948

PATIENT
  Age: 76 Year
  Sex: Female

DRUGS (12)
  1. CELEBREX [Suspect]
     Dosage: UNK
  2. MEDROL [Suspect]
     Dosage: UNK
  3. FELDENE [Suspect]
     Dosage: UNK
  4. LODINE [Suspect]
     Dosage: UNK
  5. MORPHINE SULFATE [Suspect]
     Dosage: UNK
  6. PREDNISONE [Suspect]
     Dosage: UNK
  7. VIOXX [Suspect]
     Dosage: UNK
  8. BIOFER [Suspect]
     Dosage: UNK
  9. SALICYCLIC ACID [Suspect]
     Dosage: UNK
  10. FOSAMAX [Suspect]
     Dosage: UNK
  11. VOLTAREN [Suspect]
     Dosage: UNK
  12. NORTRIPTYLIN [Suspect]
     Dosage: UNK

REACTIONS (1)
  - Drug hypersensitivity [Unknown]
